FAERS Safety Report 23658184 (Version 1)
Quarter: 2024Q1

REPORT INFORMATION
  Report Type: Spontaneous
  Country: US (occurrence: None)
  Receive Date: 20240320
  Receipt Date: 20240320
  Transmission Date: 20240410
  Serious: Yes (Other)
  Sender: FDA-Public Use
  Company Number: None

PATIENT
  Age: 66 Year
  Sex: Male
  Weight: 87 kg

DRUGS (1)
  1. VANCOMYCIN [Suspect]
     Active Substance: VANCOMYCIN
     Indication: Arteriovenous fistula site complication
     Dosage: OTHER FREQUENCY : ONCE;?
     Route: 042
     Dates: start: 20240311, end: 20240311

REACTIONS (6)
  - Dialysis [None]
  - Pruritus [None]
  - Dizziness [None]
  - Flushing [None]
  - Blood pressure decreased [None]
  - Drug hypersensitivity [None]

NARRATIVE: CASE EVENT DATE: 20240311
